FAERS Safety Report 9197293 (Version 1)
Quarter: 2013Q1

REPORT INFORMATION
  Report Type: Spontaneous
  Country: FR (occurrence: FR)
  Receive Date: 20130328
  Receipt Date: 20130328
  Transmission Date: 20140127
  Serious: Yes (Other)
  Sender: FDA-Public Use
  Company Number: FR-PFIZER INC-2013099143

PATIENT
  Age: 8 Year
  Sex: Female
  Weight: 27 kg

DRUGS (1)
  1. FLUCONAZOLE [Suspect]

REACTIONS (1)
  - Pancreatitis [Unknown]
